FAERS Safety Report 8132721-1 (Version None)
Quarter: 2012Q1

REPORT INFORMATION
  Report Type: 
  Country: None (occurrence: None)
  Receive Date: 20120213
  Receipt Date: 20120208
  Transmission Date: 20120608
  Serious: Yes (Other)
  Sender: FDA-Public Use
  Company Number: JP-PFIZER INC-2012016170

PATIENT
  Age: 16 Year
  Sex: Female

DRUGS (2)
  1. SOLU-MEDROL [Suspect]
     Indication: MULTIPLE SCLEROSIS
     Dosage: 1000 MG DAILY
     Route: 042
     Dates: start: 20100212
  2. AZATHIOPRINE [Concomitant]
     Indication: MULTIPLE SCLEROSIS

REACTIONS (1)
  - SUICIDAL BEHAVIOUR [None]
